FAERS Safety Report 6832698-2 (Version None)
Quarter: 2010Q3

REPORT INFORMATION
  Report Type: 
  Country: None (occurrence: None)
  Receive Date: 20100712
  Receipt Date: 20090326
  Transmission Date: 20110219
  Serious: No
  Sender: FDA-Public Use
  Company Number: US-PFIZER INC-2007020240

PATIENT
  Sex: Female

DRUGS (1)
  1. CHANTIX [Suspect]
     Indication: SMOKING CESSATION THERAPY
     Dosage: UNK
     Route: 048
     Dates: start: 20061201, end: 20061201

REACTIONS (4)
  - ABNORMAL DREAMS [None]
  - BODY HEIGHT DECREASED [None]
  - NAUSEA [None]
  - WEIGHT DECREASED [None]
